FAERS Safety Report 14071327 (Version 2)
Quarter: 2017Q4

REPORT INFORMATION
  Report Type: Spontaneous
  Country: CA (occurrence: CA)
  Receive Date: 20171011
  Receipt Date: 20171204
  Transmission Date: 20180321
  Serious: Yes (Hospitalization, Other)
  Sender: FDA-Public Use
  Company Number: CA-ORION CORPORATION ORION PHARMA-TREX2017-3079

PATIENT
  Age: 45 Year
  Sex: Female

DRUGS (3)
  1. METHOTREXATE (TRADE NAME UNKNOWN) [Suspect]
     Active Substance: METHOTREXATE
     Route: 065
  2. INFLECTRA [Suspect]
     Active Substance: INFLIXIMAB-DYYB
     Indication: COLITIS ULCERATIVE
     Dosage: EVERY 0,2,6 WEEKS, AND THEN EVERY 8 WEEKS
     Route: 042
     Dates: start: 20170818, end: 20170929
  3. CORTISONE [Concomitant]
     Active Substance: CORTISONE\HYDROCORTISONE
     Route: 065

REACTIONS (2)
  - Bronchitis [Unknown]
  - Bronchospasm [Unknown]

NARRATIVE: CASE EVENT DATE: 201709
